FAERS Safety Report 7156388-4 (Version None)
Quarter: 2010Q4

REPORT INFORMATION
  Report Type: 
  Country: None (occurrence: None)
  Receive Date: 20101214
  Receipt Date: 20101207
  Transmission Date: 20110411
  Serious: Yes (Death)
  Sender: FDA-Public Use
  Company Number: GB-ROCHE-727324

PATIENT
  Age: 74 Year
  Sex: Male
  Weight: 107 kg

DRUGS (7)
  1. CAPECITABINE [Suspect]
     Indication: COLON CANCER
     Route: 048
     Dates: start: 20100205, end: 20100714
  2. ASPIRIN [Concomitant]
  3. ATENOLOL [Concomitant]
  4. FERROUS SULFATE TAB [Concomitant]
     Dosage: ACTIVE CONSTITUENT REPORTED AS: IRON
  5. RAMIPRIL [Concomitant]
  6. RANITIDINE [Concomitant]
  7. ZOPICLONE [Concomitant]

REACTIONS (2)
  - DEATH [None]
  - MYOCARDIAL INFARCTION [None]
